FAERS Safety Report 10400635 (Version 1)
Quarter: 2014Q3

REPORT INFORMATION
  Report Type: Spontaneous
  Country: US (occurrence: US)
  Receive Date: 20140821
  Receipt Date: 20140821
  Transmission Date: 20150326
  Serious: No
  Sender: FDA-Public Use
  Company Number: US-ASTRAZENECA-2014SE12384

PATIENT
  Age: 82 Year
  Sex: Female
  Weight: 77.1 kg

DRUGS (4)
  1. BABY ASPIRIN [Concomitant]
     Active Substance: ASPIRIN
     Indication: CARDIAC DISORDER
     Dosage: NOT REPORTED NR
  2. INDOPRIL [Concomitant]
     Dosage: NOT REPORTED NR
  3. SYMBICORT [Suspect]
     Active Substance: BUDESONIDE\FORMOTEROL FUMARATE DIHYDRATE
     Indication: CHRONIC OBSTRUCTIVE PULMONARY DISEASE
     Dosage: 160/4.5 MCG, TWO PUFFS BID
     Route: 055
     Dates: start: 2013
  4. DILOVENT [Concomitant]
     Dosage: NOT REPORTED NR

REACTIONS (4)
  - Drug ineffective [Unknown]
  - Lip injury [Not Recovered/Not Resolved]
  - Circumstance or information capable of leading to medication error [Unknown]
  - Lip pain [Not Recovered/Not Resolved]

NARRATIVE: CASE EVENT DATE: 20131204
